FAERS Safety Report 5830715-X (Version None)
Quarter: 2008Q3

REPORT INFORMATION
  Report Type: 
  Country: None (occurrence: None)
  Receive Date: 20080801
  Receipt Date: 20071017
  Transmission Date: 20090109
  Serious: No
  Sender: FDA-Public Use
  Company Number: US-BRISTOL-MYERS SQUIBB COMPANY-13947916

PATIENT
  Sex: Male

DRUGS (11)
  1. COUMADIN [Suspect]
     Indication: ATRIAL FIBRILLATION
  2. SOY LECITHIN [Concomitant]
  3. FISH OIL [Concomitant]
  4. GLUTATHIONE [Concomitant]
  5. ASCORBIC ACID [Concomitant]
  6. VITAMIN E [Concomitant]
  7. CHONDROITIN SULFATE [Concomitant]
  8. HYALURONIC ACID [Concomitant]
  9. ALPHA-LIPOIC ACID [Concomitant]
  10. BETA-SITOSTEROL [Concomitant]
  11. MULTIVITAMIN WITH MINERALS [Concomitant]

REACTIONS (1)
  - INTERNATIONAL NORMALISED RATIO DECREASED [None]
